FAERS Safety Report 12879301 (Version 4)
Quarter: 2016Q4

REPORT INFORMATION
  Report Type: Spontaneous
  Country: US (occurrence: US)
  Receive Date: 20161025
  Receipt Date: 20161218
  Transmission Date: 20170207
  Serious: No
  Sender: FDA-Public Use
  Company Number: US-TAIHO ONCOLOGY INC-EU-2016-02753

PATIENT
  Age: 57 Year
  Sex: Female
  Weight: 74.84 kg

DRUGS (4)
  1. DOLENE [Concomitant]
     Active Substance: ACETAMINOPHEN\PROPOXYPHENE HYDROCHLORIDE
     Dosage: NI
  2. IBUPROFEN. [Concomitant]
     Active Substance: IBUPROFEN
     Indication: PAIN
     Dosage: AS NEEDED
  3. LONSURF [Suspect]
     Active Substance: TIPIRACIL HYDROCHLORIDE\TRIFLURIDINE
     Indication: RECTAL CANCER
     Dosage: CYCLE 3 STARTED ON 05/SEP/2016
     Route: 048
     Dates: start: 20160612, end: 20160916
  4. OMEPRAZOLE. [Concomitant]
     Active Substance: OMEPRAZOLE
     Dosage: NI

REACTIONS (11)
  - Hair growth abnormal [Recovered/Resolved]
  - Disease progression [Unknown]
  - Pancytopenia [Recovered/Resolved]
  - Musculoskeletal pain [Unknown]
  - Rash [Unknown]
  - Arthralgia [Unknown]
  - Decreased appetite [Unknown]
  - Back pain [Unknown]
  - Constipation [Recovered/Resolved]
  - Weight decreased [Unknown]
  - Vaginal discharge [Unknown]

NARRATIVE: CASE EVENT DATE: 2016
